FAERS Safety Report 25364520 (Version 1)
Quarter: 2025Q2

REPORT INFORMATION
  Report Type: Spontaneous
  Country: US (occurrence: None)
  Receive Date: 20250527
  Receipt Date: 20250527
  Transmission Date: 20250716
  Serious: Yes (Other)
  Sender: FDA-CTU
  Company Number: None

PATIENT
  Age: 63 Year
  Sex: Male
  Weight: 76.5 kg

DRUGS (5)
  1. EZETIMIBE [Suspect]
     Active Substance: EZETIMIBE
     Indication: Blood cholesterol increased
     Dosage: 90 TABLET(S) DAILY ORAL
     Route: 048
     Dates: start: 20250515, end: 20250517
  2. 81mg aspirin [Concomitant]
  3. 3.125mg carvididol ICD installed 12/10/2021 [Concomitant]
     Dates: start: 20211210
  4. VITAMIN B COMPLEX [Concomitant]
     Active Substance: CYANOCOBALAMIN\DEXPANTHENOL\NIACINAMIDE\PYRIDOXINE HYDROCHLORIDE\RIBOFLAVIN 5^-PHOSPHATE SODIUM\THIA
  5. VITAMIN D [Concomitant]
     Active Substance: VITAMIN D NOS

REACTIONS (15)
  - Product dispensing error [None]
  - Wrong product administered [None]
  - Fatigue [None]
  - Chest discomfort [None]
  - Dyspnoea [None]
  - Muscular weakness [None]
  - Disorientation [None]
  - Thinking abnormal [None]
  - Judgement impaired [None]
  - Abnormal behaviour [None]
  - Impaired work ability [None]
  - Loss of employment [None]
  - Sinus disorder [None]
  - Cognitive disorder [None]
  - Insurance issue [None]

NARRATIVE: CASE EVENT DATE: 20250516
